FAERS Safety Report 4301885-X (Version None)
Quarter: 2004Q1

REPORT INFORMATION
  Report Type: 
  Country: None (occurrence: None)
  Receive Date: 20040223
  Receipt Date: 20040206
  Transmission Date: 20041129
  Serious: Yes (Life-Threatening, Hospitalization)
  Sender: FDA-Public Use
  Company Number: WAES 0402USA00650

PATIENT
  Age: 44 Year
  Sex: Male

DRUGS (7)
  1. LOTREL [Concomitant]
     Dates: end: 20040101
  2. ASPIRIN [Concomitant]
     Dates: end: 20040101
  3. TRICOR [Concomitant]
     Dates: end: 20040101
  4. DIOVAN HCT [Concomitant]
  5. NONSTEROIDAL ANTI-INFLAMMATORY DRUG (UNSPECIFIED) [Concomitant]
  6. ZOCOR [Suspect]
     Route: 048
     Dates: end: 20040101
  7. LEVITRA [Concomitant]

REACTIONS (3)
  - CHEST PAIN [None]
  - RENAL FAILURE [None]
  - RHABDOMYOLYSIS [None]
